FAERS Safety Report 8209058-5 (Version None)
Quarter: 2012Q1

REPORT INFORMATION
  Report Type: 
  Country: None (occurrence: None)
  Receive Date: 20120314
  Receipt Date: 20120307
  Transmission Date: 20120608
  Serious: Yes (Other)
  Sender: FDA-Public Use
  Company Number: US-ABBOTT-11P-163-0846200-00

PATIENT
  Sex: Male
  Weight: 58.112 kg

DRUGS (9)
  1. COCAINE [Suspect]
     Indication: PRODUCT USED FOR UNKNOWN INDICATION
  2. PROMETHAZINE [Concomitant]
     Indication: NAUSEA
  3. IMURAN [Concomitant]
     Indication: CROHN'S DISEASE
  4. DILANTIN [Suspect]
     Indication: CONVULSION
  5. WELLBUTRIN [Concomitant]
     Indication: DEPRESSION
  6. DILAUDID [Concomitant]
     Indication: PAIN
  7. HUMIRA [Suspect]
     Indication: CROHN'S DISEASE
     Dates: start: 20100701
  8. FOSAMAX [Concomitant]
     Indication: OSTEOPOROSIS
  9. ATIVAN [Concomitant]
     Indication: SLEEP TERROR

REACTIONS (8)
  - CROHN'S DISEASE [None]
  - EPILEPSY [None]
  - TREMOR [None]
  - DIARRHOEA [None]
  - AMNESIA [None]
  - DERMAL CYST [None]
  - TREATMENT NONCOMPLIANCE [None]
  - LOSS OF CONSCIOUSNESS [None]
